FAERS Safety Report 9192006 (Version 1)
Quarter: 2013Q1

REPORT INFORMATION
  Report Type: Spontaneous
  Country: US (occurrence: None)
  Receive Date: 20130326
  Receipt Date: 20130326
  Transmission Date: 20140127
  Serious: Yes (Other)
  Sender: FDA-Public Use
  Company Number: None

PATIENT
  Sex: Male

DRUGS (5)
  1. XTANDI 40MG ASTELLAS [Suspect]
     Indication: PROSTATE CANCER
     Route: 048
     Dates: start: 20121114, end: 20130324
  2. NOVOLOG [Concomitant]
  3. SIMVASTATIN [Concomitant]
  4. GLIPIZIDE XL [Concomitant]
  5. PREDNISONE [Concomitant]

REACTIONS (5)
  - Fall [None]
  - Convulsion [None]
  - Transient ischaemic attack [None]
  - Weight decreased [None]
  - Prostatic specific antigen abnormal [None]
